FAERS Safety Report 19840543 (Version 2)
Quarter: 2021Q3

REPORT INFORMATION
  Report Type: Spontaneous
  Country: AU (occurrence: AU)
  Receive Date: 20210916
  Receipt Date: 20210922
  Transmission Date: 20211014
  Serious: Yes (Hospitalization)
  Sender: FDA-Public Use
  Company Number: AU-BAUSCH-BL-2021-031146

PATIENT
  Sex: Male

DRUGS (6)
  1. PREDNISOLONE. [Suspect]
     Active Substance: PREDNISOLONE
     Indication: PRODUCT USED FOR UNKNOWN INDICATION
     Route: 065
  2. FRUSEMIDE SANDOZ [Suspect]
     Active Substance: FUROSEMIDE
     Indication: FLUID RETENTION
     Route: 065
  3. VENTOLIN [Suspect]
     Active Substance: ALBUTEROL SULFATE
     Indication: PRODUCT USED FOR UNKNOWN INDICATION
     Dosage: INHALER
     Route: 065
  4. DOXYCYCLINE. [Suspect]
     Active Substance: DOXYCYCLINE
     Indication: IMMUNE ENHANCEMENT THERAPY
     Route: 065
  5. TRELEGY ELLIPTA [Suspect]
     Active Substance: FLUTICASONE FUROATE\UMECLIDINIUM BROMIDE\VILANTEROL TRIFENATATE
     Indication: CHRONIC OBSTRUCTIVE PULMONARY DISEASE
     Dosage: INHALATION POWDER; 1 PUFF(S) ONCE DAILY
     Route: 055
  6. PREDNISOLONE. [Suspect]
     Active Substance: PREDNISOLONE
     Dosage: HAD GONE BACK UP TO 30MG ONCE DAILY
     Route: 065

REACTIONS (6)
  - Condition aggravated [Unknown]
  - Rales [Unknown]
  - Total lung capacity decreased [Unknown]
  - Pneumonia [Unknown]
  - Sputum abnormal [Unknown]
  - Dyspnoea [Unknown]
